FAERS Safety Report 23447872 (Version 2)
Quarter: 2024Q1

REPORT INFORMATION
  Report Type: Report from Study
  Country: KR (occurrence: KR)
  Receive Date: 20240126
  Receipt Date: 20240131
  Transmission Date: 20240410
  Serious: Yes (Other)
  Sender: FDA-Public Use
  Company Number: KR-ANTENGENE-20240102249

PATIENT
  Age: 61 Year
  Sex: Female
  Weight: 60 kg

DRUGS (17)
  1. SELINEXOR [Suspect]
     Active Substance: SELINEXOR
     Indication: Plasma cell myeloma
     Dosage: 80 MG, 2X/WEEK
     Route: 048
     Dates: start: 20230615, end: 20230624
  2. SELINEXOR [Suspect]
     Active Substance: SELINEXOR
     Dosage: 100 MG, WEEKLY
     Route: 048
     Dates: start: 20230710, end: 20230717
  3. SELINEXOR [Suspect]
     Active Substance: SELINEXOR
     Dosage: 60 MG, WEEKLY
     Route: 048
     Dates: start: 20230807, end: 20230814
  4. SELINEXOR [Suspect]
     Active Substance: SELINEXOR
     Dosage: 60 MG, WEEKLY
     Route: 048
     Dates: start: 20230915, end: 20231116
  5. SELINEXOR [Suspect]
     Active Substance: SELINEXOR
     Dosage: 60 MG, WEEKLY
     Route: 048
     Dates: start: 20231117, end: 20231122
  6. CYTOTEC [Concomitant]
     Active Substance: MISOPROSTOL
     Indication: Prophylaxis
     Dosage: 200 UG, QD
     Route: 048
     Dates: start: 20230615, end: 20231116
  7. ASPIRIN [Concomitant]
     Active Substance: ASPIRIN
     Indication: Ischaemic stroke
     Dosage: 100 MG, QD
     Route: 048
     Dates: start: 20210430
  8. LANSOPRAZOLE [Concomitant]
     Active Substance: LANSOPRAZOLE
     Indication: Prophylaxis
     Dosage: 15 MG, QD
     Route: 048
     Dates: start: 20210429
  9. LIPITOR [Concomitant]
     Active Substance: ATORVASTATIN CALCIUM
     Indication: Ischaemic stroke
     Dosage: 10 MG, QD
     Route: 048
     Dates: start: 20210525
  10. BENFOREX [Concomitant]
     Indication: Prophylaxis
     Dosage: UNK
     Route: 048
     Dates: start: 20210430
  11. DEXAMETHASONE [Concomitant]
     Active Substance: DEXAMETHASONE
     Indication: Plasma cell myeloma
     Dosage: 20 MG
     Route: 048
     Dates: start: 20230615, end: 20231116
  12. SOLONDO [ISOTRETINOIN] [Concomitant]
     Indication: Plasma cell myeloma
     Dosage: 30 MG, QD
     Route: 048
     Dates: start: 20230724, end: 20230806
  13. LEVOFLOXACIN [Concomitant]
     Active Substance: LEVOFLOXACIN
     Indication: Prophylaxis
     Dosage: 500 MG, QD
     Route: 048
     Dates: start: 20230821, end: 20230903
  14. LEVOFLOXACIN [Concomitant]
     Active Substance: LEVOFLOXACIN
     Dosage: 500 MG, QD
     Route: 048
     Dates: start: 20231019, end: 20231101
  15. K-CONTIN CONTINUS [Concomitant]
     Indication: Prophylaxis
     Dosage: 1200 MG, BID
     Route: 048
     Dates: start: 20230828, end: 20230906
  16. MAGNES [Concomitant]
     Indication: Prophylaxis
     Dosage: UNK
     Route: 048
     Dates: start: 20230828, end: 20230906
  17. MEIACT BORYUNG [Concomitant]
     Indication: Prophylaxis
     Dosage: 100 MG, TID
     Route: 048
     Dates: start: 20231116, end: 20231122

REACTIONS (15)
  - Suicidal ideation [Recovered/Resolved]
  - Cervix carcinoma stage IV [Not Recovered/Not Resolved]
  - Pruritus [Not Recovered/Not Resolved]
  - Depression [Recovered/Resolved]
  - Depression [Not Recovered/Not Resolved]
  - Weight decreased [Recovering/Resolving]
  - Asthenia [Recovered/Resolved with Sequelae]
  - Thrombocytopenia [Not Recovered/Not Resolved]
  - Anaemia [Not Recovered/Not Resolved]
  - Decreased appetite [Not Recovered/Not Resolved]
  - Nausea [Not Recovered/Not Resolved]
  - Pyrexia [Recovered/Resolved]
  - Asthenia [Recovered/Resolved with Sequelae]
  - Constipation [Recovered/Resolved]
  - Asthenia [Not Recovered/Not Resolved]

NARRATIVE: CASE EVENT DATE: 20230616
